FAERS Safety Report 22606769 (Version 1)
Quarter: 2023Q2

REPORT INFORMATION
  Report Type: Spontaneous
  Country: US (occurrence: None)
  Receive Date: 20230615
  Receipt Date: 20230615
  Transmission Date: 20230722
  Serious: Yes (Hospitalization)
  Sender: FDA-Public Use
  Company Number: None

PATIENT
  Age: 73 Year
  Sex: Male
  Weight: 123.1 kg

DRUGS (15)
  1. CAPECITABINE [Suspect]
     Active Substance: CAPECITABINE
     Indication: Rectal cancer
     Dosage: 3000MG TWICE DAILY ORAL?
     Route: 048
     Dates: start: 202304
  2. ACETAMINOPHEN [Concomitant]
     Active Substance: ACETAMINOPHEN
  3. ASPIRIN LOW [Concomitant]
  4. DOCUSATE [Concomitant]
     Active Substance: DOCUSATE
  5. FERROUS SULFATE [Concomitant]
     Active Substance: FERROUS SULFATE
  6. GLIMEPIRIDE [Concomitant]
     Active Substance: GLIMEPIRIDE
  7. ISOSORBIDE [Concomitant]
     Active Substance: ISOSORBIDE
  8. JANUMET XR [Concomitant]
     Active Substance: METFORMIN HYDROCHLORIDE\SITAGLIPTIN PHOSPHATE
  9. METOPROLOL [Concomitant]
     Active Substance: METOPROLOL
  10. VITAMINS [Concomitant]
     Active Substance: VITAMINS
  11. OFLOXACIN OTIC [Concomitant]
     Active Substance: OFLOXACIN
  12. POLYETHYLENE GLYCOL [Concomitant]
     Active Substance: POLYETHYLENE GLYCOL
  13. PREDNISOLONE [Concomitant]
     Active Substance: PREDNISOLONE
  14. PROLENSA [Concomitant]
     Active Substance: BROMFENAC SODIUM
  15. VITAMIN D NOS [Concomitant]
     Active Substance: VITAMIN D NOS

REACTIONS (2)
  - Haematological infection [None]
  - Abdominal pain upper [None]

NARRATIVE: CASE EVENT DATE: 20230614
